FAERS Safety Report 25727872 (Version 1)
Quarter: 2025Q3

REPORT INFORMATION
  Report Type: Spontaneous
  Country: CN (occurrence: CN)
  Receive Date: 20250826
  Receipt Date: 20250826
  Transmission Date: 20251020
  Serious: Yes (Hospitalization)
  Sender: MERCK SHARP & DOHME LLC
  Company Number: CN-009507513-2320893

PATIENT
  Age: 56 Year
  Sex: Female
  Weight: 60 kg

DRUGS (6)
  1. PEMBROLIZUMAB [Suspect]
     Active Substance: PEMBROLIZUMAB
     Indication: Breast cancer stage IV
     Dosage: 200 MG, EVERY 21 DAYS
     Route: 041
     Dates: start: 20250630, end: 20250630
  2. PEMBROLIZUMAB [Suspect]
     Active Substance: PEMBROLIZUMAB
     Indication: Breast cancer stage IV
     Dosage: 200 MG, EVERY 21 DAYS
     Route: 041
     Dates: start: 20250609, end: 20250609
  3. CARBOPLATIN [Suspect]
     Active Substance: CARBOPLATIN
     Indication: Breast cancer stage IV
     Dosage: 600 MG (ALSO REPORTED AS AREA UNDER THE CURVE (AUC) 5.5), EVERY 21 DAYS
     Route: 041
     Dates: start: 20250701, end: 20250701
  4. CARBOPLATIN [Suspect]
     Active Substance: CARBOPLATIN
     Indication: Breast cancer stage IV
     Dosage: 600 MG (ALSO REPORTED AS AREA UNDER THE CURVE (AUC) 5.5), EVERY 21 DAYS
     Route: 041
     Dates: start: 20250610, end: 20250610
  5. PACLITAXEL [Suspect]
     Active Substance: PACLITAXEL
     Indication: Breast cancer stage IV
     Dosage: 400 MG, EVERY 21 DAY
     Route: 041
     Dates: start: 20250701, end: 20250701
  6. PACLITAXEL [Suspect]
     Active Substance: PACLITAXEL
     Indication: Breast cancer stage IV
     Dosage: 400 MG, EVERY 21 DAY
     Route: 041
     Dates: start: 20250610, end: 20250610

REACTIONS (3)
  - Blood creatinine increased [Unknown]
  - Product use in unapproved indication [Unknown]
  - Myelosuppression [Unknown]

NARRATIVE: CASE EVENT DATE: 20250609
